FAERS Safety Report 6297149-8 (Version None)
Quarter: 2009Q3

REPORT INFORMATION
  Report Type: 
  Country: None (occurrence: None)
  Receive Date: 20090805
  Receipt Date: 20080506
  Transmission Date: 20100115
  Serious: Yes (Death, Hospitalization)
  Sender: FDA-Public Use
  Company Number: DE-BAXTER-2008BH003963

PATIENT
  Age: 56 Year
  Sex: Male
  Weight: 66 kg

DRUGS (8)
  1. ADVATE [Suspect]
     Indication: FACTOR VIII DEFICIENCY
     Route: 065
     Dates: start: 20050801
  2. ISCOVER [Suspect]
     Indication: DRUG USE FOR UNKNOWN INDICATION
     Dosage: DOSE UNIT:UNKNOWN
     Route: 065
     Dates: start: 20070101
  3. FIBRINOGEN [Suspect]
     Indication: CEREBRAL HAEMORRHAGE
     Route: 065
     Dates: start: 20070730, end: 20070730
  4. FACTOR VIIA [Suspect]
     Indication: CEREBRAL HAEMORRHAGE
     Route: 065
     Dates: start: 20070730
  5. CLOPIDOGREL [Suspect]
     Indication: DRUG USE FOR UNKNOWN INDICATION
     Route: 065
     Dates: start: 20070101
  6. RED BLOOD CELLS [Concomitant]
     Indication: CEREBRAL HAEMORRHAGE
     Route: 065
     Dates: start: 20070730, end: 20070802
  7. PLATELETS [Concomitant]
     Indication: CEREBRAL HAEMORRHAGE
     Route: 065
     Dates: start: 20070730, end: 20070730
  8. PLASMA [Concomitant]
     Indication: CEREBRAL HAEMORRHAGE
     Route: 065
     Dates: start: 20070730, end: 20070730

REACTIONS (4)
  - CEREBRAL HAEMORRHAGE [None]
  - RESPIRATORY FAILURE [None]
  - VENTRICULAR ARRHYTHMIA [None]
  - VENTRICULAR FLUTTER [None]
